FAERS Safety Report 4378193-4 (Version None)
Quarter: 2004Q2

REPORT INFORMATION
  Report Type: 
  Country: None (occurrence: None)
  Receive Date: 20040614
  Receipt Date: 20040614
  Transmission Date: 20050107
  Serious: Yes (Hospitalization)
  Sender: FDA-Public Use
  Company Number: None

PATIENT
  Age: 55 Year
  Sex: Male
  Weight: 78.5 kg

DRUGS (8)
  1. OXALIPLATIN [Suspect]
     Indication: GASTRIC CANCER
     Dosage: 84 MG WEEKLY IV
     Route: 042
     Dates: start: 20040419
  2. OXALIPLATIN [Suspect]
     Indication: GASTRIC CANCER
     Dosage: 84 MG WEEKLY IV
     Route: 042
     Dates: start: 20040426
  3. FLUOROURACIL [Suspect]
     Indication: GASTRIC CANCER
     Dosage: 558 MG WEEKLY X 5 DAYS IV
     Route: 042
     Dates: start: 20040419, end: 20040423
  4. FLUOROURACIL [Suspect]
     Indication: GASTRIC CANCER
     Dosage: 558 MG WEEKLY X 5 DAYS IV
     Route: 042
     Dates: start: 20040426, end: 20040430
  5. ZOFRAN [Concomitant]
  6. PEPCID [Concomitant]
  7. HYDROCORTISONE [Concomitant]
  8. TYLENOL [Concomitant]

REACTIONS (5)
  - ABDOMINAL PAIN [None]
  - CHROMATURIA [None]
  - FAECES PALE [None]
  - HYPERBILIRUBINAEMIA [None]
  - PYREXIA [None]
